FAERS Safety Report 23172736 (Version 3)
Quarter: 2024Q4

REPORT INFORMATION
  Report Type: Spontaneous
  Country: US (occurrence: US)
  Receive Date: 20231110
  Receipt Date: 20241001
  Transmission Date: 20250114
  Serious: Yes (Hospitalization, Other)
  Sender: REGENERON
  Company Number: US-SA-2023SA341416

PATIENT
  Age: 72 Year
  Sex: Male

DRUGS (1)
  1. LIBTAYO [Suspect]
     Active Substance: CEMIPLIMAB-RWLC
     Indication: Squamous cell carcinoma

REACTIONS (9)
  - Muscular weakness [Unknown]
  - Overlap syndrome [Unknown]
  - Dysphagia [Unknown]
  - Ventricular extrasystoles [Unknown]
  - Unresponsive to stimuli [Unknown]
  - Myocarditis [Unknown]
  - Myositis [Unknown]
  - Myasthenia gravis [Unknown]
  - Dyspnoea [Unknown]
